FAERS Safety Report 12506927 (Version 3)
Quarter: 2016Q3

REPORT INFORMATION
  Report Type: Spontaneous
  Country: GB (occurrence: GB)
  Receive Date: 20160629
  Receipt Date: 20160729
  Transmission Date: 20161109
  Serious: Yes (Hospitalization, Other)
  Sender: FDA-Public Use
  Company Number: GB-BRISTOL-MYERS SQUIBB COMPANY-BMS-2015-079419

PATIENT
  Age: 44 Year
  Sex: Female

DRUGS (10)
  1. ABILIFY [Suspect]
     Active Substance: ARIPIPRAZOLE
     Indication: BIPOLAR I DISORDER
     Dosage: 15 MG, QD
     Route: 048
     Dates: start: 20150130, end: 20160413
  2. CLOPIXOL-ACUPHASE [Suspect]
     Active Substance: ZUCLOPENTHIXOL
     Dosage: 100 MG, UNK
     Route: 030
     Dates: start: 20150413, end: 20150413
  3. OLANZAPINE. [Suspect]
     Active Substance: OLANZAPINE
     Indication: PRODUCT USED FOR UNKNOWN INDICATION
     Dosage: 1 DF, PRN
     Route: 048
     Dates: start: 20150330, end: 20150412
  4. CLOPIXOL-ACUPHASE [Suspect]
     Active Substance: ZUCLOPENTHIXOL
     Indication: MANIA
     Dosage: 50 MG, UNK
     Route: 030
     Dates: start: 20150331, end: 20150331
  5. CLONAZEPAM. [Suspect]
     Active Substance: CLONAZEPAM
     Indication: PRODUCT USED FOR UNKNOWN INDICATION
     Dosage: 1 MG, TID
     Route: 048
     Dates: start: 20150329, end: 20150413
  6. LORAZEPAM. [Suspect]
     Active Substance: LORAZEPAM
     Indication: PRODUCT USED FOR UNKNOWN INDICATION
     Dosage: 4 MG, UNK
     Route: 030
     Dates: start: 20150401, end: 20150402
  7. CLOPIXOL-ACUPHASE [Suspect]
     Active Substance: ZUCLOPENTHIXOL
     Dosage: 150 MG, UNK
     Route: 030
     Dates: start: 20150412, end: 20150412
  8. LORAZEPAM. [Suspect]
     Active Substance: LORAZEPAM
     Dosage: 1 DF, PRN
     Route: 048
     Dates: start: 20150330, end: 20150412
  9. LORAZEPAM. [Suspect]
     Active Substance: LORAZEPAM
     Dosage: 1 DF, PRN
     Route: 030
     Dates: start: 20150330, end: 20150412
  10. CLOPIXOL-ACUPHASE [Suspect]
     Active Substance: ZUCLOPENTHIXOL
     Dosage: 100 MG, UNK
     Route: 030
     Dates: start: 20150401, end: 20150402

REACTIONS (3)
  - Neutropenia [Recovered/Resolved]
  - Medication error [Recovered/Resolved]
  - Prescribed overdose [Recovered/Resolved]

NARRATIVE: CASE EVENT DATE: 20150414
